FAERS Safety Report 7555509-9 (Version None)
Quarter: 2011Q2

REPORT INFORMATION
  Report Type: 
  Country: None (occurrence: None)
  Receive Date: 20110617
  Receipt Date: 20110614
  Transmission Date: 20111010
  Serious: Yes (Life-Threatening, Hospitalization, Other)
  Sender: FDA-Public Use
  Company Number: PHHY2010CA75876

PATIENT
  Sex: Male

DRUGS (2)
  1. SANDOSTATIN LAR [Suspect]
     Indication: ACROMEGALY
     Dosage: 10 MG, EVERY 6 WEEK
     Route: 030
     Dates: start: 20060420
  2. SANDOSTATIN LAR [Suspect]
     Dosage: 10 MG EVERY 4 WEEKS
     Route: 030

REACTIONS (14)
  - GASTRIC DISORDER [None]
  - LYMPHADENOPATHY [None]
  - HAEMOGLOBIN DECREASED [None]
  - EXERCISE TOLERANCE DECREASED [None]
  - BILIARY COLIC [None]
  - BACK PAIN [None]
  - DYSPHAGIA [None]
  - ASTHENIA [None]
  - CHOLELITHIASIS [None]
  - MALAISE [None]
  - OESOPHAGEAL ADENOCARCINOMA [None]
  - GASTROINTESTINAL HAEMORRHAGE [None]
  - GASTROOESOPHAGEAL REFLUX DISEASE [None]
  - FATIGUE [None]
